FAERS Safety Report 16617910 (Version 1)
Quarter: 2019Q3

REPORT INFORMATION
  Report Type: Spontaneous
  Country: IN (occurrence: IN)
  Receive Date: 20190723
  Receipt Date: 20190723
  Transmission Date: 20191004
  Serious: Yes (Hospitalization)
  Sender: FDA-Public Use
  Company Number: IN-EPIC PHARMA LLC-2019EPC00196

PATIENT
  Age: 8 Year
  Sex: Male

DRUGS (1)
  1. PHENYTOIN. [Suspect]
     Active Substance: PHENYTOIN
     Indication: SEIZURE PROPHYLAXIS
     Dosage: 6 MG/KG/DAY
     Route: 048

REACTIONS (5)
  - Hemiparesis [Recovering/Resolving]
  - Hypertonia [Recovering/Resolving]
  - Toxicity to various agents [Recovering/Resolving]
  - Generalised tonic-clonic seizure [Recovered/Resolved]
  - Facial paralysis [Recovering/Resolving]
